FAERS Safety Report 7937473-3 (Version None)
Quarter: 2011Q4

REPORT INFORMATION
  Report Type: 
  Country: None (occurrence: None)
  Receive Date: 20111123
  Receipt Date: 20111114
  Transmission Date: 20120403
  Serious: Yes (Other)
  Sender: FDA-Public Use
  Company Number: AU-ASTRAZENECA-2011SE66554

PATIENT
  Age: 21260 Day
  Sex: Female
  Weight: 53.8 kg

DRUGS (7)
  1. AZD9773 CODE NOT BROKEN [Concomitant]
     Indication: SEPSIS
     Dosage: BID
     Route: 042
     Dates: start: 20111026, end: 20111030
  2. AZITHROMYCIN [Concomitant]
     Indication: SEPSIS
     Route: 042
     Dates: start: 20111025, end: 20111026
  3. MEROPENEM [Suspect]
     Indication: PNEUMONIA
     Dosage: CONTINUOUS INFUSION
     Route: 042
     Dates: start: 20111026, end: 20111028
  4. CEFTRIAXONE [Concomitant]
     Indication: SEPSIS
     Route: 042
     Dates: start: 20111025, end: 20111026
  5. MEROPENEM [Suspect]
     Indication: MULTI-ORGAN FAILURE
     Dosage: CONTINUOUS INFUSION
     Route: 042
     Dates: start: 20111026, end: 20111028
  6. VANCOMYCIN [Concomitant]
     Dosage: CONTINUOUS INFUSION
     Route: 042
     Dates: start: 20111027, end: 20111028
  7. VANCOMYCIN [Concomitant]
     Indication: SEPSIS
     Route: 042
     Dates: start: 20111026, end: 20111026

REACTIONS (2)
  - LIVER FUNCTION TEST ABNORMAL [None]
  - GASTROINTESTINAL HAEMORRHAGE [None]
